FAERS Safety Report 7285397-X (Version None)
Quarter: 2011Q1

REPORT INFORMATION
  Report Type: 
  Country: None (occurrence: None)
  Receive Date: 20110121
  Receipt Date: 20090527
  Transmission Date: 20110831
  Serious: No
  Sender: FDA-Public Use
  Company Number: AE 2009-068

PATIENT
  Age: 60 Year
  Sex: Female

DRUGS (6)
  1. FAZACLO ODT [Suspect]
     Indication: PSYCHOTIC DISORDER
     Dosage: 400 MG BID PO
     Route: 048
     Dates: start: 20090512, end: 20090501
  2. METFORMIN [Concomitant]
  3. LEVOTHYROXINE SODIUM [Concomitant]
  4. SEROQUEL [Concomitant]
  5. LISINOPRIL [Concomitant]
  6. TRILEPTAL [Concomitant]

REACTIONS (2)
  - ABDOMINAL DISCOMFORT [None]
  - NAUSEA [None]
